FAERS Safety Report 9402576 (Version 3)
Quarter: 2013Q3

REPORT INFORMATION
  Report Type: Report from Study
  Country: US (occurrence: US)
  Receive Date: 20130716
  Receipt Date: 20130904
  Transmission Date: 20140515
  Serious: Yes (Death, Life-Threatening, Hospitalization)
  Sender: FDA-Public Use
  Company Number: US-BRISTOL-MYERS SQUIBB COMPANY-19088855

PATIENT
  Age: 40 Year
  Sex: Female
  Weight: 86.6 kg

DRUGS (1)
  1. IPILIMUMAB [Suspect]
     Indication: CERVIX CARCINOMA
     Dosage: 235.8MG; LAST DOSE:26-JUN-2013;
     Route: 042
     Dates: start: 20130506

REACTIONS (5)
  - Pleural effusion [Fatal]
  - Pulmonary embolism [Unknown]
  - Renal failure acute [Recovering/Resolving]
  - Fatigue [Not Recovered/Not Resolved]
  - Pyrexia [Not Recovered/Not Resolved]
